FAERS Safety Report 4519530-7 (Version None)
Quarter: 2004Q4

REPORT INFORMATION
  Report Type: 
  Country: None (occurrence: None)
  Receive Date: 20041202
  Receipt Date: 20041122
  Transmission Date: 20050328
  Serious: Yes (Hospitalization)
  Sender: FDA-Public Use
  Company Number: 230083K04AUS

PATIENT
  Age: 42 Year
  Sex: Female

DRUGS (3)
  1. REBIF [Suspect]
     Indication: RELAPSING-REMITTING MULTIPLE SCLEROSIS
     Dosage: 44 MCG, 3 IN 1 WEEKS, SUBCUTANEOUS
     Route: 058
     Dates: start: 20040301
  2. AMANTADINE [Concomitant]
  3. FLUOXETINE [Concomitant]

REACTIONS (6)
  - HAEMOLYTIC URAEMIC SYNDROME [None]
  - MALIGNANT HYPERTENSION [None]
  - MIGRAINE [None]
  - RENAL FAILURE ACUTE [None]
  - VISION BLURRED [None]
  - VOMITING [None]
